FAERS Safety Report 9552326 (Version 2)
Quarter: 2013Q4

REPORT INFORMATION
  Report Type: Spontaneous
  Country: IE (occurrence: IE)
  Receive Date: 20130925
  Receipt Date: 20131022
  Transmission Date: 20140711
  Serious: Yes (Hospitalization, Other)
  Sender: FDA-Public Use
  Company Number: IE-AMGEN-IRLSP2013066966

PATIENT
  Age: 69 Year
  Sex: Male

DRUGS (5)
  1. NEULASTA [Suspect]
     Indication: SMALL CELL LUNG CANCER
     Dosage: 6 MG, POST CHEMO 3 WEEKLY
     Route: 058
     Dates: start: 20130829
  2. NEULASTA [Suspect]
     Indication: PROPHYLAXIS
  3. CHEMOTHERAPEUTICS [Concomitant]
     Indication: SMALL CELL LUNG CANCER
     Dosage: UNK
     Dates: start: 201305
  4. CARBOPLATIN [Concomitant]
     Indication: LUNG NEOPLASM MALIGNANT
     Dosage: UNK
     Route: 042
     Dates: start: 20130829
  5. PACLITAXEL [Concomitant]
     Indication: LUNG NEOPLASM MALIGNANT
     Dosage: UNK
     Route: 042
     Dates: start: 20130829

REACTIONS (2)
  - Compression fracture [Unknown]
  - Metastases to bone [Not Recovered/Not Resolved]
